FAERS Safety Report 12054061 (Version 2)
Quarter: 2016Q4

REPORT INFORMATION
  Report Type: Spontaneous
  Country: US (occurrence: US)
  Receive Date: 20160209
  Receipt Date: 20161118
  Transmission Date: 20170206
  Serious: Yes (Other)
  Sender: FDA-Public Use
  Company Number: US-SA-2016SA005483

PATIENT
  Age: 55 Year
  Sex: Female

DRUGS (12)
  1. PRALUENT [Suspect]
     Active Substance: ALIROCUMAB
     Indication: BLOOD CHOLESTEROL INCREASED
     Dosage: STRENGTH 75 MG
     Route: 065
     Dates: start: 20151021, end: 201609
  2. PRALUENT [Suspect]
     Active Substance: ALIROCUMAB
     Indication: BLOOD CHOLESTEROL INCREASED
     Dosage: STRENGTH 150 MG
     Route: 065
     Dates: start: 20161102
  3. VITAMIN D [Concomitant]
     Active Substance: CHOLECALCIFEROL
  4. PRALUENT [Suspect]
     Active Substance: ALIROCUMAB
     Indication: BLOOD CHOLESTEROL INCREASED
     Dosage: STRENGTH 75 MG
     Route: 065
     Dates: start: 20161019, end: 20161019
  5. VERAPAMIL [Concomitant]
     Active Substance: VERAPAMIL HYDROCHLORIDE
  6. PRALUENT [Suspect]
     Active Substance: ALIROCUMAB
     Indication: LIPIDS INCREASED
     Dosage: STRENGTH 150 MG
     Route: 065
     Dates: start: 20161005, end: 20161005
  7. ALIROCUMAB PREFILLED PEN [Concomitant]
     Active Substance: ALIROCUMAB
     Indication: BLOOD CHOLESTEROL INCREASED
     Dates: start: 20151021
  8. PRALUENT [Suspect]
     Active Substance: ALIROCUMAB
     Indication: LIPIDS INCREASED
     Dosage: STRENGTH 75 MG
     Route: 065
     Dates: start: 20151021, end: 201609
  9. PRALUENT [Suspect]
     Active Substance: ALIROCUMAB
     Indication: LIPIDS INCREASED
     Dosage: STRENGTH 75 MG
     Route: 065
     Dates: start: 20161019, end: 20161019
  10. ALIROCUMAB PREFILLED PEN [Concomitant]
     Active Substance: ALIROCUMAB
     Indication: LIPIDS INCREASED
     Dates: start: 20151021
  11. PRALUENT [Suspect]
     Active Substance: ALIROCUMAB
     Indication: BLOOD CHOLESTEROL INCREASED
     Dosage: STRENGTH 150 MG
     Route: 065
     Dates: start: 20161005, end: 20161005
  12. PRALUENT [Suspect]
     Active Substance: ALIROCUMAB
     Indication: LIPIDS INCREASED
     Dosage: STRENGTH 150 MG
     Route: 065
     Dates: start: 20161102

REACTIONS (9)
  - Flatulence [Not Recovered/Not Resolved]
  - Constipation [Not Recovered/Not Resolved]
  - Malaise [Recovering/Resolving]
  - Vascular occlusion [Unknown]
  - Diarrhoea [Not Recovered/Not Resolved]
  - Abdominal discomfort [Recovering/Resolving]
  - Dyspepsia [Recovering/Resolving]
  - Influenza like illness [Not Recovered/Not Resolved]
  - Angina pectoris [Recovering/Resolving]

NARRATIVE: CASE EVENT DATE: 2015
